FAERS Safety Report 18498603 (Version 23)
Quarter: 2022Q4

REPORT INFORMATION
  Report Type: Report from Study
  Country: US (occurrence: US)
  Receive Date: 20201112
  Receipt Date: 20221109
  Transmission Date: 20230113
  Serious: Yes (Hospitalization, Other)
  Sender: FDA-Public Use
  Company Number: US-TAKEDA-US202032456

PATIENT
  Age: 37 Year
  Sex: Female
  Weight: 65 kg

DRUGS (17)
  1. ECALLANTIDE [Suspect]
     Active Substance: ECALLANTIDE
     Indication: Immune system disorder
     Dosage: 30 MILLIGRAM
     Route: 058
     Dates: start: 20131022
  2. ECALLANTIDE [Suspect]
     Active Substance: ECALLANTIDE
     Dosage: 30 MILLIGRAM
     Route: 058
     Dates: start: 20131022
  3. ECALLANTIDE [Suspect]
     Active Substance: ECALLANTIDE
     Dosage: 30 MILLIGRAM
     Route: 058
     Dates: start: 20170511
  4. RUCONEST [Suspect]
     Active Substance: HUMAN C1-ESTERASE INHIBITOR
     Indication: Immune system disorder
     Dosage: 4200 INTERNATIONAL UNIT
     Route: 042
     Dates: start: 20180827
  5. LEVOTHYROXINE [Concomitant]
     Active Substance: LEVOTHYROXINE
     Dosage: UNK
     Route: 065
  6. CELEXA [Concomitant]
     Active Substance: CITALOPRAM HYDROBROMIDE
     Dosage: UNK
     Route: 065
  7. VITAMINS [Concomitant]
     Active Substance: VITAMINS
     Dosage: UNK
     Route: 065
  8. HEPARIN [Concomitant]
     Active Substance: HEPARIN SODIUM
     Dosage: UNK
     Route: 065
  9. SODIUM CHLORIDE [Concomitant]
     Active Substance: SODIUM CHLORIDE
     Dosage: UNK
     Route: 065
  10. EPINEPHRINE [Concomitant]
     Active Substance: EPINEPHRINE
     Dosage: UNK
     Route: 065
  11. ZOLOFT [Concomitant]
     Active Substance: SERTRALINE HYDROCHLORIDE
     Route: 065
  12. KLONOPIN [Concomitant]
     Active Substance: CLONAZEPAM
     Route: 065
  13. HAEGARDA [Concomitant]
     Active Substance: HUMAN C1-ESTERASE INHIBITOR
     Route: 065
  14. LYRICA [Concomitant]
     Active Substance: PREGABALIN
     Route: 065
  15. PRAZOSIN HYDROCHLORIDE [Concomitant]
     Active Substance: PRAZOSIN HYDROCHLORIDE
     Route: 065
  16. STERILE WATER [Concomitant]
     Active Substance: WATER
     Route: 065
  17. TYLENOL [Concomitant]
     Active Substance: ACETAMINOPHEN
     Route: 065

REACTIONS (17)
  - Gastrointestinal necrosis [Unknown]
  - Rectal haemorrhage [Unknown]
  - Vasculitis [Unknown]
  - Anaemia [Unknown]
  - Blood pressure decreased [Unknown]
  - Nutritional condition abnormal [Unknown]
  - Hereditary angioedema [Not Recovered/Not Resolved]
  - Infusion site vesicles [Unknown]
  - Infusion site discomfort [Unknown]
  - Peripheral swelling [Unknown]
  - Pain in extremity [Unknown]
  - Blister [Unknown]
  - Vomiting [Unknown]
  - Urticaria [Unknown]
  - Pruritus [Unknown]
  - Drug ineffective [Unknown]
  - Colitis [Unknown]

NARRATIVE: CASE EVENT DATE: 20220123
